FAERS Safety Report 20364309 (Version 1)
Quarter: 2022Q1

REPORT INFORMATION
  Report Type: Spontaneous
  Country: US (occurrence: None)
  Receive Date: 20220121
  Receipt Date: 20220121
  Transmission Date: 20220423
  Serious: Yes (Hospitalization)
  Sender: FDA-Public Use
  Company Number: None

PATIENT
  Sex: Female

DRUGS (1)
  1. PULMOZYME [Suspect]
     Active Substance: DORNASE ALFA
     Indication: Bronchitis chronic
     Dosage: OTHER QUANTITY : 2.5/2.5 MG;ML;?OTHER FREQUENCY : DAILY WHEN WELL. T;?
     Route: 055
     Dates: start: 20210716

REACTIONS (2)
  - COVID-19 [None]
  - Therapy interrupted [None]
